FAERS Safety Report 14305327 (Version 1)
Quarter: 2017Q4

REPORT INFORMATION
  Report Type: Spontaneous
  Country: US (occurrence: US)
  Receive Date: 20171219
  Receipt Date: 20171219
  Transmission Date: 20180321
  Serious: Yes (Hospitalization, Other)
  Sender: FDA-Public Use
  Company Number: US-OTSUKA-DJ20106778

PATIENT
  Sex: Male

DRUGS (1)
  1. ABILIFY [Suspect]
     Active Substance: ARIPIPRAZOLE
     Indication: PRODUCT USED FOR UNKNOWN INDICATION
     Dosage: UNK
     Route: 065
     Dates: end: 20100925

REACTIONS (5)
  - Extrapyramidal disorder [Unknown]
  - Crohn^s disease [Unknown]
  - Treatment noncompliance [Unknown]
  - Systemic lupus erythematosus [Unknown]
  - Neuroleptic malignant syndrome [Unknown]
